FAERS Safety Report 10509040 (Version 10)
Quarter: 2018Q4

REPORT INFORMATION
  Report Type: Spontaneous
  Country: US (occurrence: US)
  Receive Date: 20141009
  Receipt Date: 20181107
  Transmission Date: 20190204
  Serious: Yes (Other)
  Sender: FDA-Public Use
  Company Number: US-ASTRAZENECA-2014SE69488

PATIENT
  Age: 801 Month
  Sex: Female
  Weight: 50.3 kg

DRUGS (54)
  1. SYMBICORT [Suspect]
     Active Substance: BUDESONIDE\FORMOTEROL FUMARATE DIHYDRATE
     Indication: CHRONIC OBSTRUCTIVE PULMONARY DISEASE
     Dosage: 160/4.5 MCG, 2 PUFFS TWICE PER DAY
     Route: 055
  2. TUDORZA PRESSAIR [Suspect]
     Active Substance: ACLIDINIUM BROMIDE
     Indication: ASTHMA
     Route: 055
     Dates: start: 2012
  3. PREVACID [Concomitant]
     Active Substance: LANSOPRAZOLE
     Indication: ULCER
     Route: 048
  4. LINZESS [Concomitant]
     Active Substance: LINACLOTIDE
     Indication: IRRITABLE BOWEL SYNDROME
     Route: 048
  5. RESTASIS [Concomitant]
     Active Substance: CYCLOSPORINE
     Indication: DRY EYE
     Dosage: EVERY 12 HOURS
     Route: 047
  6. SYMBICORT [Suspect]
     Active Substance: BUDESONIDE\FORMOTEROL FUMARATE DIHYDRATE
     Indication: ASTHMA
     Dosage: 160/4.5 MCG, 2 PUFFS TWICE PER DAY
     Route: 055
  7. PREVACID [Concomitant]
     Active Substance: LANSOPRAZOLE
     Indication: ULCER
     Route: 048
  8. SELENIUM [Concomitant]
     Active Substance: SELENIUM
     Indication: LIVER DISORDER
     Route: 048
  9. SELENIUM [Concomitant]
     Active Substance: SELENIUM
     Indication: HAIR DISORDER
     Route: 048
  10. OSCAL [Concomitant]
     Active Substance: CALCIUM CARBONATE
     Indication: MUSCLE SPASMS
     Dosage: 500.0MG UNKNOWN
     Route: 048
  11. VITAMIN D [Concomitant]
     Active Substance: CHOLECALCIFEROL
     Indication: SUPPLEMENTATION THERAPY
     Dosage: DAILY
     Route: 048
  12. SINGULAIR [Concomitant]
     Active Substance: MONTELUKAST SODIUM
     Indication: DRUG HYPERSENSITIVITY
     Dosage: AT NIGHT
     Route: 048
  13. PROGESTERONE. [Concomitant]
     Active Substance: PROGESTERONE
     Indication: HOT FLUSH
     Dosage: DAILY
     Route: 048
  14. ADVAIR HFA [Concomitant]
     Active Substance: FLUTICASONE PROPIONATE\SALMETEROL XINAFOATE
     Indication: CHRONIC OBSTRUCTIVE PULMONARY DISEASE
     Dates: start: 2015, end: 2015
  15. TUDORZA PRESSAIR [Suspect]
     Active Substance: ACLIDINIUM BROMIDE
     Indication: CHRONIC OBSTRUCTIVE PULMONARY DISEASE
     Route: 055
     Dates: start: 2012
  16. VERAPAMIL [Concomitant]
     Active Substance: VERAPAMIL HYDROCHLORIDE
     Indication: HYPERTENSION
     Route: 048
     Dates: start: 2007
  17. OSCAL [Concomitant]
     Active Substance: CALCIUM CARBONATE
     Indication: MINERAL SUPPLEMENTATION
     Dosage: 500.0MG UNKNOWN
     Route: 048
  18. ZYRTEC [Concomitant]
     Active Substance: CETIRIZINE HYDROCHLORIDE
     Indication: DRUG HYPERSENSITIVITY
     Route: 048
  19. AFRIN [Concomitant]
     Active Substance: OXYMETAZOLINE
     Indication: SLEEP DISORDER
     Dosage: AS REQUIRED
     Route: 045
  20. LINZESS [Concomitant]
     Active Substance: LINACLOTIDE
     Indication: IRRITABLE BOWEL SYNDROME
     Dosage: DAILY
     Route: 048
  21. SYMBICORT [Suspect]
     Active Substance: BUDESONIDE\FORMOTEROL FUMARATE DIHYDRATE
     Indication: CHRONIC OBSTRUCTIVE PULMONARY DISEASE
     Dosage: 320 MCG, TWO TIMES A DAY
     Route: 055
     Dates: start: 2012, end: 201410
  22. SYMBICORT [Suspect]
     Active Substance: BUDESONIDE\FORMOTEROL FUMARATE DIHYDRATE
     Indication: ASTHMA
     Dosage: 320 MCG, TWO TIMES A DAY
     Route: 055
     Dates: start: 2012, end: 201410
  23. SYMBICORT [Suspect]
     Active Substance: BUDESONIDE\FORMOTEROL FUMARATE DIHYDRATE
     Indication: ASTHMA
     Route: 055
     Dates: start: 2013, end: 2015
  24. PREVACID [Concomitant]
     Active Substance: LANSOPRAZOLE
     Indication: GASTROOESOPHAGEAL REFLUX DISEASE
     Route: 048
  25. CLONAZEPAM. [Concomitant]
     Active Substance: CLONAZEPAM
     Indication: ANXIETY
     Route: 048
     Dates: start: 2012
  26. ADDARALL [Concomitant]
     Indication: ATTENTION DEFICIT/HYPERACTIVITY DISORDER
     Route: 048
     Dates: start: 2013
  27. PROVENTIL [Concomitant]
     Active Substance: ALBUTEROL
     Indication: CHRONIC OBSTRUCTIVE PULMONARY DISEASE
     Route: 055
  28. RESTASIS [Concomitant]
     Active Substance: CYCLOSPORINE
     Indication: DRY EYE
     Dosage: GTT
     Route: 047
  29. VYVANSE [Concomitant]
     Active Substance: LISDEXAMFETAMINE DIMESYLATE
     Indication: ATTENTION DEFICIT/HYPERACTIVITY DISORDER
     Dosage: EVERY 12 HOURS
     Route: 048
     Dates: start: 2014
  30. PREMARIN [Concomitant]
     Active Substance: ESTROGENS, CONJUGATED
     Indication: VAGINAL DISORDER
     Dosage: BIWK
     Route: 048
  31. ADVAIR HFA [Concomitant]
     Active Substance: FLUTICASONE PROPIONATE\SALMETEROL XINAFOATE
     Indication: ASTHMA
     Dates: start: 2015, end: 2015
  32. SEROQUEL [Suspect]
     Active Substance: QUETIAPINE FUMARATE
     Indication: ANXIETY
     Dosage: EVERY EIGHT HOURS
     Route: 048
  33. PREVACID [Concomitant]
     Active Substance: LANSOPRAZOLE
     Indication: GASTROOESOPHAGEAL REFLUX DISEASE
     Route: 048
  34. FISH OIL [Concomitant]
     Active Substance: FISH OIL
     Route: 048
  35. PROVENTIL [Concomitant]
     Active Substance: ALBUTEROL
     Indication: INHALATION THERAPY
     Route: 055
  36. CLONAZEPAM. [Concomitant]
     Active Substance: CLONAZEPAM
     Indication: ANXIETY
     Dosage: EVERY EIGHT HOURS
     Route: 048
  37. ESTRADIOL. [Concomitant]
     Active Substance: ESTRADIOL
     Indication: HOT FLUSH
     Dosage: DAILY
     Route: 048
     Dates: start: 2014
  38. KENALOG CREAM [Concomitant]
     Indication: DRY SKIN
     Route: 061
  39. PROGESTERONE. [Concomitant]
     Active Substance: PROGESTERONE
     Indication: HOT FLUSH
     Dosage: PROMTRIUM, 100 MG
     Route: 048
     Dates: start: 2014
  40. TRIAMCINOLONE [Concomitant]
     Active Substance: TRIAMCINOLONE
     Indication: DRY SKIN
     Dosage: AS REQUIRED
  41. SYMBICORT [Suspect]
     Active Substance: BUDESONIDE\FORMOTEROL FUMARATE DIHYDRATE
     Indication: CHRONIC OBSTRUCTIVE PULMONARY DISEASE
     Route: 055
     Dates: start: 2013, end: 2015
  42. SEROQUEL [Suspect]
     Active Substance: QUETIAPINE FUMARATE
     Indication: ANXIETY
     Dosage: QUETIAPINE
     Route: 048
  43. ZETIA [Concomitant]
     Active Substance: EZETIMIBE
     Indication: BLOOD CHOLESTEROL ABNORMAL
     Route: 048
     Dates: start: 2004
  44. CLONAZEPAM. [Concomitant]
     Active Substance: CLONAZEPAM
     Indication: ANXIETY
     Dates: start: 2006
  45. LANSOPRAZOLE. [Concomitant]
     Active Substance: LANSOPRAZOLE
  46. SELENIUM [Concomitant]
     Active Substance: SELENIUM
     Indication: ALOPECIA
     Dosage: DAILY
     Route: 048
  47. ZETIA [Concomitant]
     Active Substance: EZETIMIBE
     Indication: BLOOD CHOLESTEROL ABNORMAL
     Dosage: 10
     Route: 048
     Dates: start: 2009
  48. VERAPAMIL [Concomitant]
     Active Substance: VERAPAMIL HYDROCHLORIDE
     Indication: DIZZINESS
     Route: 048
     Dates: start: 2007
  49. AFRIN [Concomitant]
     Active Substance: OXYMETAZOLINE
     Indication: SLEEP DISORDER
     Route: 045
  50. MECLIZINE [Concomitant]
     Active Substance: MECLIZINE HYDROCHLORIDE
     Indication: DIZZINESS
     Route: 048
  51. CLONAZEPAM. [Concomitant]
     Active Substance: CLONAZEPAM
     Indication: ANXIETY
     Dosage: EVERY EIGHT HOURS
     Route: 048
  52. ZOCOR [Concomitant]
     Active Substance: SIMVASTATIN
  53. ZYRTEC [Concomitant]
     Active Substance: CETIRIZINE HYDROCHLORIDE
     Indication: DRUG HYPERSENSITIVITY
     Dosage: AS REQUIRED
     Route: 048
  54. REFRESH TEARS OTC [Concomitant]
     Indication: DRY EYE
     Route: 047

REACTIONS (29)
  - Dysphonia [Not Recovered/Not Resolved]
  - Pain in extremity [Unknown]
  - Panic attack [Unknown]
  - Gastrooesophageal reflux disease [Unknown]
  - Candida infection [Recovered/Resolved]
  - Dysphonia [Not Recovered/Not Resolved]
  - Muscle strain [Not Recovered/Not Resolved]
  - Malaise [Unknown]
  - Fatigue [Not Recovered/Not Resolved]
  - Viral infection [Unknown]
  - Cataract [Unknown]
  - Hot flush [Recovered/Resolved]
  - Dyspnoea [Unknown]
  - Sinus disorder [Unknown]
  - Stress [Unknown]
  - Product dose omission [Recovered/Resolved]
  - Fall [Unknown]
  - Hypersomnia [Unknown]
  - Visual impairment [Unknown]
  - Productive cough [Unknown]
  - Alveolar osteitis [Unknown]
  - Lymphadenopathy [Unknown]
  - Rotator cuff syndrome [Unknown]
  - Intentional product misuse [Unknown]
  - Back injury [Unknown]
  - Pain [Unknown]
  - Wheezing [Unknown]
  - Device issue [Unknown]
  - Wrong technique in product usage process [Unknown]

NARRATIVE: CASE EVENT DATE: 2014
